FAERS Safety Report 9003605 (Version 1)
Quarter: 2013Q1

REPORT INFORMATION
  Report Type: Spontaneous
  Country: US (occurrence: US)
  Receive Date: 20130108
  Receipt Date: 20130108
  Transmission Date: 20140127
  Serious: Yes (Death)
  Sender: FDA-Public Use
  Company Number: US-PFIZER INC-2013004479

PATIENT
  Age: 35 Year
  Sex: Female

DRUGS (2)
  1. ALPRAZOLAM [Suspect]
     Dosage: UNK
     Route: 055
  2. METHADONE [Suspect]
     Dosage: UNK
     Route: 055

REACTIONS (3)
  - Drug abuse [Fatal]
  - Cardiac arrest [Fatal]
  - Respiratory arrest [Fatal]
